FAERS Safety Report 18488400 (Version 3)
Quarter: 2021Q1

REPORT INFORMATION
  Report Type: Spontaneous
  Country: US (occurrence: US)
  Receive Date: 20201111
  Receipt Date: 20210106
  Transmission Date: 20210419
  Serious: No
  Sender: FDA-Public Use
  Company Number: US-ASTRAZENECA-2020SF42751

PATIENT
  Age: 61 Year
  Sex: Male
  Weight: 88.9 kg

DRUGS (6)
  1. BYDUREON BCISE [Suspect]
     Active Substance: EXENATIDE
     Indication: TYPE 2 DIABETES MELLITUS
     Route: 058
  2. METFORMIN [Concomitant]
     Active Substance: METFORMIN HYDROCHLORIDE
  3. VASCEPA [Concomitant]
     Active Substance: ICOSAPENT ETHYL
     Indication: ILL-DEFINED DISORDER
     Route: 048
  4. ATORVASTATIN [Concomitant]
     Active Substance: ATORVASTATIN
     Indication: BLOOD TRIGLYCERIDES INCREASED
     Route: 048
  5. BABY ASPIRIN [Concomitant]
     Active Substance: ASPIRIN
  6. INVOKANA [Concomitant]
     Active Substance: CANAGLIFLOZIN

REACTIONS (7)
  - Circumstance or information capable of leading to medication error [Not Recovered/Not Resolved]
  - Injection site bruising [Recovering/Resolving]
  - Device issue [Unknown]
  - Injection site haemorrhage [Recovering/Resolving]
  - Hypertension [Not Recovered/Not Resolved]
  - Injection site pain [Recovering/Resolving]
  - Needle issue [Unknown]

NARRATIVE: CASE EVENT DATE: 202008
